FAERS Safety Report 8767579 (Version 4)
Quarter: 2013Q4

REPORT INFORMATION
  Report Type: Spontaneous
  Country: DE (occurrence: DE)
  Receive Date: 20120903
  Receipt Date: 20131226
  Transmission Date: 20140711
  Serious: Yes (Other)
  Sender: FDA-Public Use
  Company Number: PHHY2012DE060387

PATIENT
  Age: 23 Year
  Sex: Female

DRUGS (9)
  1. GILENYA [Suspect]
     Dosage: 0.5 MG, QD
     Route: 048
     Dates: start: 201205
  2. METHYLPREDNISOLONE [Suspect]
  3. HEPARINE [Concomitant]
  4. PANTOZOL [Concomitant]
  5. ZOPICLONE [Concomitant]
  6. LORAZEPAM [Concomitant]
  7. RANITIDINE [Concomitant]
  8. DIMETINDENE [Concomitant]
  9. PARACETAMOL [Concomitant]

REACTIONS (2)
  - Multiple sclerosis relapse [Unknown]
  - Thrombocytopenia [Unknown]
